FAERS Safety Report 6056119-5 (Version None)
Quarter: 2009Q1

REPORT INFORMATION
  Report Type: 
  Country: None (occurrence: None)
  Receive Date: 20090128
  Receipt Date: 20090116
  Transmission Date: 20090719
  Serious: Yes (Hospitalization)
  Sender: FDA-Public Use
  Company Number: GB-ELI_LILLY_AND_COMPANY-GB200901002808

PATIENT
  Age: 38 Year
  Sex: Male

DRUGS (2)
  1. ZYPREXA [Suspect]
     Indication: PSYCHOTIC DISORDER
     Dosage: UNK, UNKNOWN
     Dates: end: 20090101
  2. ZYPREXA [Suspect]
     Dosage: 30 MG, UNK
     Dates: start: 20090101

REACTIONS (2)
  - HOSPITALISATION [None]
  - OVERDOSE [None]
